FAERS Safety Report 21696866 (Version 1)
Quarter: 2022Q4

REPORT INFORMATION
  Report Type: Spontaneous
  Country: US (occurrence: US)
  Receive Date: 20221208
  Receipt Date: 20221208
  Transmission Date: 20230113
  Serious: Yes (Other)
  Sender: FDA-Public Use
  Company Number: US-BRISTOL-MYERS SQUIBB COMPANY-2022-149791

PATIENT
  Age: 55 Year
  Sex: Female
  Weight: 90 kg

DRUGS (8)
  1. DEXAMETHASONE [Suspect]
     Active Substance: DEXAMETHASONE
     Indication: Plasma cell myeloma
     Route: 065
     Dates: start: 20220622
  2. POMALIDOMIDE [Suspect]
     Active Substance: POMALIDOMIDE
     Indication: Plasma cell myeloma
     Route: 065
     Dates: start: 20220622
  3. DARATUMUMAB [Suspect]
     Active Substance: DARATUMUMAB
     Indication: Plasma cell myeloma
     Route: 065
     Dates: start: 20220622
  4. ZOVIRAX [Concomitant]
     Active Substance: ACYCLOVIR
     Dosage: TAKE 1 TABLET (400 MG TOTAL) BY MOUTH 2 (TWO) TIMES DAILY
     Route: 048
     Dates: start: 20220817
  5. PEPCID [Concomitant]
     Active Substance: FAMOTIDINE
     Dosage: 20 MG TABLET, TAKE 1 TABLET BY MOUTH TWICE A DAY (PATIENT NOT TAKING:.NO SIG REPORTED)
     Route: 048
     Dates: start: 20220309
  6. ZOFRAN [Concomitant]
     Active Substance: ONDANSETRON HYDROCHLORIDE
     Indication: Nausea
     Dosage: 8 MG TABLET, TAKE I TABLET (8 MG TOTAL) BY MOUTH EVERY 8 (EIGHT) HOURS ?AS NEEDED FOR NAUSEA. (PATIE
     Route: 048
     Dates: start: 20220110
  7. COMPAZINE [Concomitant]
     Active Substance: PROCHLORPERAZINE MALEATE
     Indication: Nausea
     Dosage: 5 MG TABLET, TAKE I TABLET (5 MG TOTAL) BY MOUTH EVERY 6 (SIX) ?HOURS AS NEEDED FOR NAUSEA. (PATIENT
     Route: 048
     Dates: start: 20220110
  8. BACTRIM DS [Concomitant]
     Active Substance: SULFAMETHOXAZOLE\TRIMETHOPRIM
     Dosage: 800-160 MG PER TABLET, I MON, WED, FRI FRO 2 MONTHS (PATIENT NOT TAKING: REPORTED ON 14-JUN-2022),
     Dates: start: 20220304

REACTIONS (2)
  - Pathological fracture [Unknown]
  - Musculoskeletal chest pain [Unknown]
